FAERS Safety Report 6050995-8 (Version None)
Quarter: 2009Q1

REPORT INFORMATION
  Report Type: 
  Country: None (occurrence: None)
  Receive Date: 20090126
  Receipt Date: 20081107
  Transmission Date: 20090719
  Serious: No
  Sender: FDA-Public Use
  Company Number: US-TYCO HEALTHCARE/MALLINCKRODT-T200801920

PATIENT

DRUGS (1)
  1. OPTIRAY 300 [Suspect]
     Indication: COMPUTERISED TOMOGRAM
     Dosage: 100 ML, SINGLE
     Route: 042
     Dates: start: 20080927, end: 20080927

REACTIONS (5)
  - ERYTHEMA [None]
  - NASAL CONGESTION [None]
  - OCULAR HYPERAEMIA [None]
  - PRURITUS [None]
  - VOMITING [None]
